FAERS Safety Report 6355616-2 (Version None)
Quarter: 2009Q3

REPORT INFORMATION
  Report Type: 
  Country: None (occurrence: None)
  Receive Date: 20090910
  Receipt Date: 20090831
  Transmission Date: 20100115
  Serious: Yes (Other)
  Sender: FDA-Public Use
  Company Number: APP200900579

PATIENT
  Age: 73 Year
  Sex: Female

DRUGS (3)
  1. ONDANSETRON [Suspect]
     Indication: CHEMOTHERAPY
     Dosage: 2 MG, ONCE
     Dates: start: 20090715, end: 20090715
  2. TAXOL [Concomitant]
  3. CISPLATIN [Concomitant]

REACTIONS (1)
  - LOSS OF CONSCIOUSNESS [None]
